FAERS Safety Report 8053556-4 (Version None)
Quarter: 2012Q1

REPORT INFORMATION
  Report Type: 
  Country: None (occurrence: None)
  Receive Date: 20120118
  Receipt Date: 20120113
  Transmission Date: 20120608
  Serious: Yes (Disabling)
  Sender: FDA-Public Use
  Company Number: FR-MERCK-1201FRA00036

PATIENT
  Age: 41 Year
  Sex: Male

DRUGS (7)
  1. ETRAVIRINE [Suspect]
     Indication: HIV INFECTION
     Route: 048
     Dates: start: 20080601
  2. ISENTRESS [Suspect]
     Indication: HIV INFECTION
     Route: 048
     Dates: start: 20080601
  3. ROSUVASTATIN CALCIUM [Suspect]
     Indication: DYSLIPIDAEMIA
     Route: 048
     Dates: start: 20100101
  4. DARUNAVIR [Suspect]
     Indication: HIV INFECTION
     Route: 048
     Dates: start: 20080601
  5. VALACYCLOVIR HYDROCHLORIDE [Suspect]
     Route: 048
     Dates: start: 19970101
  6. RITONAVIR [Suspect]
     Indication: HIV INFECTION
     Route: 048
     Dates: start: 20080601
  7. NEBIVOLOL HCL [Suspect]
     Indication: HYPERTENSION
     Route: 048
     Dates: start: 20091201

REACTIONS (1)
  - POLLAKIURIA [None]
